FAERS Safety Report 9352702 (Version 2)
Quarter: 2013Q3

REPORT INFORMATION
  Report Type: Report from Study
  Country: FR (occurrence: FR)
  Receive Date: 20130618
  Receipt Date: 20130820
  Transmission Date: 20140515
  Serious: Yes (Life-Threatening, Disabling)
  Sender: FDA-Public Use
  Company Number: FR-ROCHE-1235611

PATIENT
  Age: 85 Year
  Sex: Female
  Weight: 62 kg

DRUGS (13)
  1. RITUXIMAB [Suspect]
     Indication: DIFFUSE LARGE B-CELL LYMPHOMA
     Dosage: LAST DOSE PRIOR TO SAE 21/JUN/2011, 655 MG
     Route: 042
     Dates: start: 20110530
  2. CYCLOPHOSPHAMIDE [Suspect]
     Indication: DIFFUSE LARGE B-CELL LYMPHOMA
     Dosage: LAST DOSE PRIOR TO SAE 31/MAY/2011, 1300 MG
     Route: 042
     Dates: start: 20110531
  3. VINCRISTINE [Suspect]
     Indication: DIFFUSE LARGE B-CELL LYMPHOMA
     Dosage: LAST DOSE PRIOR TO SAE 31/MAY/2011, 2 MG
     Route: 042
     Dates: start: 20110531
  4. PREDNISONE [Suspect]
     Indication: DIFFUSE LARGE B-CELL LYMPHOMA
     Dosage: LAST DOSE PRIOR TO SAE 26/JUN/2011, 400 MG, CUMULATIVE DOSE SINCE ADMINISTRATION 800 MG
     Route: 048
     Dates: start: 20110526
  5. CORDARONE [Concomitant]
     Route: 065
     Dates: start: 20110525
  6. PRIMPERAN (FRANCE) [Concomitant]
     Indication: NAUSEA
     Route: 048
     Dates: start: 20110514
  7. ATENOLOL [Concomitant]
  8. PARACETAMOL [Concomitant]
     Indication: PAIN
     Route: 048
     Dates: start: 20110526
  9. SMECTA (FRANCE) [Concomitant]
  10. IMODIUM [Concomitant]
  11. FUNGIZONE [Concomitant]
  12. INEXIUM [Concomitant]
     Route: 048
     Dates: start: 20110624
  13. LOVENOX [Concomitant]
     Route: 058
     Dates: start: 20110506

REACTIONS (2)
  - Febrile neutropenia [Recovered/Resolved with Sequelae]
  - Bone marrow failure [Recovered/Resolved]
